FAERS Safety Report 4564774-1 (Version None)
Quarter: 2005Q1

REPORT INFORMATION
  Report Type: 
  Country: None (occurrence: None)
  Receive Date: 20050128
  Receipt Date: 20050126
  Transmission Date: 20050727
  Serious: Yes (Death)
  Sender: FDA-Public Use
  Company Number: US-ABBOTT-05P-163-0288340-00

PATIENT

DRUGS (2)
  1. RITONAVIR SOFT GELATIN CAPSULES (LEAD-IN) [Suspect]
     Indication: HIV INFECTION
  2. TIPRANAVIR [Concomitant]
     Indication: HIV INFECTION

REACTIONS (2)
  - DEATH [None]
  - UNEVALUABLE EVENT [None]
